FAERS Safety Report 23101586 (Version 3)
Quarter: 2024Q3

REPORT INFORMATION
  Report Type: Report from Study
  Country: US (occurrence: US)
  Receive Date: 20231025
  Receipt Date: 20240702
  Transmission Date: 20241017
  Serious: Yes (Other)
  Sender: ABBVIE
  Company Number: US-ABBVIE-5383114

PATIENT
  Age: 61 Year
  Sex: Male
  Weight: 90 kg

DRUGS (3)
  1. HUMIRA [Suspect]
     Active Substance: ADALIMUMAB
     Indication: Crohn^s disease
     Dosage: FORM STRENGTH: 40 MG,
     Route: 058
     Dates: start: 201612
  2. HUMIRA [Suspect]
     Active Substance: ADALIMUMAB
     Dosage: FORM STRENGTH: 40 MILLIGRAM, INCREASED
     Route: 058
     Dates: start: 201706
  3. HUMIRA [Suspect]
     Active Substance: ADALIMUMAB
     Dosage: FORM STRENGTH: 40MILLIGRAM
     Route: 058
     Dates: start: 20231013

REACTIONS (9)
  - Prostatomegaly [Recovered/Resolved]
  - Frequent bowel movements [Unknown]
  - Crohn^s disease [Recovering/Resolving]
  - Unevaluable event [Not Recovered/Not Resolved]
  - Micturition urgency [Not Recovered/Not Resolved]
  - Basal cell carcinoma [Unknown]
  - Peripheral nerve neurostimulation [Unknown]
  - Diverticulitis [Unknown]
  - Faeces soft [Unknown]

NARRATIVE: CASE EVENT DATE: 20191101
